FAERS Safety Report 8330407-1 (Version None)
Quarter: 2012Q2

REPORT INFORMATION
  Report Type: 
  Country: None (occurrence: None)
  Receive Date: 20120502
  Receipt Date: 20120426
  Transmission Date: 20120825
  Serious: Yes (Hospitalization)
  Sender: FDA-Public Use
  Company Number: IT-PFIZER INC-2012103606

PATIENT
  Age: 72 Year
  Sex: Female
  Weight: 68 kg

DRUGS (8)
  1. ROSUVASTATIN [Concomitant]
     Indication: LIPID METABOLISM DISORDER
     Dosage: UNK
     Dates: start: 20090407
  2. OCTREOTIDE [Concomitant]
     Dosage: UNK
     Dates: start: 20020101
  3. TICLOPIDINE [Concomitant]
     Indication: MYOCARDIAL INFARCTION
     Dosage: UNK
     Dates: start: 20090407
  4. PEGVISOMANT [Suspect]
     Indication: ACROMEGALY
     Dosage: 10 MG, OTHER 2 TIMES WEEKLY
     Dates: start: 20070201, end: 20100713
  5. TELMISARTAN [Concomitant]
     Indication: HYPERTENSION
     Dosage: UNK
     Dates: start: 20090407
  6. GLIMEPIRIDE [Concomitant]
     Indication: TYPE 2 DIABETES MELLITUS
     Dosage: UNK
     Route: 048
     Dates: start: 20050601
  7. LEVOTHYROXINE [Concomitant]
     Dosage: UNK
     Route: 048
     Dates: start: 20090407
  8. DILTIAZEM [Concomitant]
     Indication: HYPERTENSION
     Dosage: UNK
     Dates: start: 20090407

REACTIONS (1)
  - HEPATITIS ACUTE [None]
